FAERS Safety Report 7174932-8 (Version None)
Quarter: 2010Q4

REPORT INFORMATION
  Report Type: 
  Country: None (occurrence: None)
  Receive Date: 20101220
  Receipt Date: 20100406
  Transmission Date: 20110411
  Serious: No
  Sender: FDA-Public Use
  Company Number: US-AMGEN-TCS403892

PATIENT

DRUGS (2)
  1. ENBREL [Suspect]
     Indication: PSORIATIC ARTHROPATHY
     Dosage: 50 MG, QWK
     Route: 058
  2. METHOTREXATE [Concomitant]
     Dosage: 2.5 MG, QWK
     Route: 048

REACTIONS (8)
  - ARTHRALGIA [None]
  - HYPERSENSITIVITY [None]
  - INJECTION SITE PAIN [None]
  - NASOPHARYNGITIS [None]
  - NEEDLE ISSUE [None]
  - PAIN IN EXTREMITY [None]
  - SINUSITIS [None]
  - VARICOSE VEIN [None]
